FAERS Safety Report 15255959 (Version 1)
Quarter: 2018Q3

REPORT INFORMATION
  Report Type: Report from Study
  Country: US (occurrence: US)
  Receive Date: 20180808
  Receipt Date: 20180808
  Transmission Date: 20181010
  Serious: Yes (Hospitalization)
  Sender: FDA-Public Use
  Company Number: US-PFIZER INC-2018314139

PATIENT
  Age: 44 Year
  Sex: Female

DRUGS (4)
  1. CIPROFLOXACIN. [Suspect]
     Active Substance: CIPROFLOXACIN
     Indication: INFECTION PROPHYLAXIS
     Dosage: 500 MG, 2X/DAY
     Dates: start: 200110, end: 200110
  2. CIPROFLOXACIN. [Suspect]
     Active Substance: CIPROFLOXACIN
     Dosage: UNK, 1X/DAY (RECOMMENCED ON CIPROFLOXACIN)
     Dates: start: 200111, end: 200112
  3. CIPROFLOXACIN. [Suspect]
     Active Substance: CIPROFLOXACIN
     Dosage: 500 MG, DAILY
     Dates: start: 200201
  4. DOXYCYCLINE. [Concomitant]
     Active Substance: DOXYCYCLINE
     Indication: INFECTION PROPHYLAXIS
     Dosage: 100 MG, 2X/DAY
     Dates: start: 200111, end: 200111

REACTIONS (5)
  - Hypertensive nephropathy [Unknown]
  - Nephropathy toxic [Unknown]
  - Acute kidney injury [Unknown]
  - Tubulointerstitial nephritis [Unknown]
  - Nausea [Unknown]

NARRATIVE: CASE EVENT DATE: 200201
